FAERS Safety Report 10884055 (Version 2)
Quarter: 2015Q1

REPORT INFORMATION
  Report Type: Spontaneous
  Country: HR (occurrence: HR)
  Receive Date: 20150304
  Receipt Date: 20150312
  Transmission Date: 20150721
  Serious: Yes (Death)
  Sender: FDA-Public Use
  Company Number: HR-ABBVIE-15K-216-1354972-00

PATIENT
  Sex: Male

DRUGS (5)
  1. HUMIRA [Suspect]
     Active Substance: ADALIMUMAB
     Indication: PRODUCT USED FOR UNKNOWN INDICATION
     Dosage: I DOSE
     Route: 058
     Dates: start: 20150127, end: 20150127
  2. ENERGIX [Concomitant]
     Indication: HEPATITIS
  3. HUMIRA [Suspect]
     Active Substance: ADALIMUMAB
     Dosage: II DOSE
     Route: 058
     Dates: start: 20150203, end: 20150203
  4. AMOXICILLIN. [Concomitant]
     Active Substance: AMOXICILLIN
     Indication: PROPHYLAXIS
     Dosage: 2 G
  5. HUMIRA [Suspect]
     Active Substance: ADALIMUMAB
     Dosage: IIIDOSE
     Route: 058
     Dates: start: 20150218, end: 20150218

REACTIONS (2)
  - Aortic rupture [Fatal]
  - Aortic dilatation [Unknown]
